FAERS Safety Report 6077570-3 (Version None)
Quarter: 2009Q1

REPORT INFORMATION
  Report Type: 
  Country: None (occurrence: None)
  Receive Date: 20090213
  Receipt Date: 20090210
  Transmission Date: 20090719
  Serious: Yes (Disabling)
  Sender: FDA-Public Use
  Company Number: US-MERCK-0902USA01651

PATIENT
  Age: 72 Year
  Sex: Female

DRUGS (4)
  1. ZOCOR [Suspect]
     Indication: BLOOD CHOLESTEROL
     Route: 048
     Dates: start: 20081218, end: 20090201
  2. BONIVA [Concomitant]
     Route: 065
  3. MIACALCIN [Concomitant]
     Route: 065
  4. PHENOBARBITAL [Concomitant]
     Route: 065

REACTIONS (5)
  - ARTHRALGIA [None]
  - FALL [None]
  - MOVEMENT DISORDER [None]
  - PAIN [None]
  - PAIN IN EXTREMITY [None]
